FAERS Safety Report 14933195 (Version 1)
Quarter: 2018Q2

REPORT INFORMATION
  Report Type: Spontaneous
  Country: US (occurrence: US)
  Receive Date: 20180504
  Receipt Date: 20180504
  Transmission Date: 20180711
  Serious: Yes (Death)
  Sender: FDA-Public Use
  Company Number: None

PATIENT
  Sex: Male

DRUGS (26)
  1. METOPROL SUCC [Concomitant]
  2. ROSUVASTATIN. [Concomitant]
     Active Substance: ROSUVASTATIN
  3. SODIUM BICAR [Concomitant]
  4. FREESTYLE TES LITE [Concomitant]
  5. ZOLPIDEM [Concomitant]
     Active Substance: ZOLPIDEM\ZOLPIDEM TARTRATE
  6. CHLORHEX GLU SOL [Concomitant]
  7. TRAVEL LANCE MIS [Concomitant]
  8. OSELTAMIVIR [Concomitant]
     Active Substance: OSELTAMIVIR
  9. ALLOPURINOL. [Concomitant]
     Active Substance: ALLOPURINOL
  10. WARFARIN [Concomitant]
     Active Substance: WARFARIN
  11. OXYCODONE AND ACETAMINOPHEN [Concomitant]
     Active Substance: ACETAMINOPHEN\OXYCODONE HYDROCHLORIDE
  12. HUMALOG [Concomitant]
     Active Substance: INSULIN LISPRO
  13. ADVAIR DISKU AER [Concomitant]
  14. CLOPIDOGREL [Concomitant]
     Active Substance: CLOPIDOGREL BISULFATE
  15. VALGANCICLOVIR. [Concomitant]
     Active Substance: VALGANCICLOVIR
  16. NYSTATIN. [Concomitant]
     Active Substance: NYSTATIN
  17. CYCLOSPORINE. [Concomitant]
     Active Substance: CYCLOSPORINE
  18. VALACYCLOVIR [Concomitant]
     Active Substance: VALACYCLOVIR HYDROCHLORIDE
  19. LANTUS [Concomitant]
     Active Substance: INSULIN GLARGINE
  20. DICLOFENAC GEL [Concomitant]
     Active Substance: DICLOFENAC
  21. SANDIMMUNE [Suspect]
     Active Substance: CYCLOSPORINE
     Indication: TRANSPLANT
     Route: 048
     Dates: start: 20160818
  22. OMEPRAZOLE. [Concomitant]
     Active Substance: OMEPRAZOLE
  23. INSULIN [Concomitant]
     Active Substance: INSULIN NOS
  24. ALCOHOL PREP PAD [Concomitant]
     Active Substance: ISOPROPYL ALCOHOL
  25. LIDOCAINE. [Concomitant]
     Active Substance: LIDOCAINE
  26. DICYCLOMINE [Concomitant]
     Active Substance: DICYCLOMINE HYDROCHLORIDE

REACTIONS (1)
  - Death [None]
